FAERS Safety Report 26095366 (Version 1)
Quarter: 2025Q4

REPORT INFORMATION
  Report Type: Spontaneous
  Country: EU (occurrence: EU)
  Receive Date: 20251127
  Receipt Date: 20251127
  Transmission Date: 20260118
  Serious: Yes (Other)
  Sender: AMGEN
  Company Number: EU-AMGEN-DNKSP2025223492

PATIENT

DRUGS (7)
  1. PANITUMUMAB [Suspect]
     Active Substance: PANITUMUMAB
     Indication: Colorectal cancer metastatic
     Dosage: 6 MILLIGRAM/KILOGRAM, INFUSED OVER 30 MIN
     Route: 065
  2. PANITUMUMAB [Suspect]
     Active Substance: PANITUMUMAB
     Dosage: UNK, DOSE REDUCED
     Route: 065
  3. IRINOTECAN [Suspect]
     Active Substance: IRINOTECAN
     Indication: Colorectal cancer metastatic
     Dosage: 180 MILLIGRAM/SQ. METER, INFUSED OVER 30 MIN
     Route: 065
  4. IRINOTECAN [Suspect]
     Active Substance: IRINOTECAN
     Dosage: UNK, DOSE REDUCED
     Route: 065
  5. BEVACIZUMAB [Suspect]
     Active Substance: BEVACIZUMAB
     Indication: Colorectal cancer metastatic
     Dosage: 5 MILLIGRAM/KILOGRAM, INFUSED OVER 10 MIN
     Route: 065
  6. CETUXIMAB [Suspect]
     Active Substance: CETUXIMAB
     Indication: Colorectal cancer metastatic
     Dosage: 500 MILLIGRAM/SQ. METER, INFUSED OVER 60 MIN
     Route: 065
  7. CETUXIMAB [Suspect]
     Active Substance: CETUXIMAB
     Dosage: UNK, DOSE REDUCED
     Route: 065

REACTIONS (4)
  - Colorectal cancer metastatic [Unknown]
  - Rash [Unknown]
  - Paronychia [Unknown]
  - Therapy partial responder [Unknown]
